FAERS Safety Report 4689181-2 (Version None)
Quarter: 2005Q2

REPORT INFORMATION
  Report Type: 
  Country: None (occurrence: None)
  Receive Date: 20050608
  Receipt Date: 20050228
  Transmission Date: 20051028
  Serious: No
  Sender: FDA-Public Use
  Company Number: 2005-BP-03142BP

PATIENT
  Age: 60 Year
  Sex: Female

DRUGS (5)
  1. SPIRIVA [Suspect]
     Indication: CHRONIC OBSTRUCTIVE PULMONARY DISEASE
     Dosage: 18 MCG (18 MCG, OD), IH
     Route: 055
     Dates: start: 20050101
  2. THEOPHYLLINE [Concomitant]
  3. ALBUTEROL [Concomitant]
  4. IPRATROPIUM BROMIDE [Concomitant]
  5. ADVAIR DISKUS 100/50 [Concomitant]

REACTIONS (4)
  - BACK PAIN [None]
  - DRY MOUTH [None]
  - HEADACHE [None]
  - JOINT SWELLING [None]
